FAERS Safety Report 7945731-1 (Version None)
Quarter: 2011Q4

REPORT INFORMATION
  Report Type: 
  Country: None (occurrence: None)
  Receive Date: 20111129
  Receipt Date: 20111116
  Transmission Date: 20120403
  Serious: Yes (Other)
  Sender: FDA-Public Use
  Company Number: US-ELI_LILLY_AND_COMPANY-US201111005854

PATIENT
  Age: 65 Year
  Sex: Female

DRUGS (6)
  1. CYMBALTA [Suspect]
     Dosage: 60 MG, QD
     Dates: end: 20111101
  2. SIMVASTATIN [Concomitant]
  3. GLYBURIDE [Concomitant]
  4. CYMBALTA [Suspect]
     Indication: DEPRESSION
     Dosage: 30 MG, QD
     Dates: start: 20111001
  5. DIOVAN [Concomitant]
  6. METFORMIN HCL [Concomitant]

REACTIONS (4)
  - PALPITATIONS [None]
  - INSOMNIA [None]
  - HEART RATE DECREASED [None]
  - FEELING JITTERY [None]
